FAERS Safety Report 11833737 (Version 2)
Quarter: 2016Q1

REPORT INFORMATION
  Report Type: Report from Study
  Country: TW (occurrence: TW)
  Receive Date: 20151214
  Receipt Date: 20160223
  Transmission Date: 20160525
  Serious: No
  Sender: FDA-Public Use
  Company Number: PHHY2013TW151238

PATIENT
  Age: 68 Year
  Sex: Male

DRUGS (14)
  1. RIFATER [Concomitant]
     Active Substance: ISONIAZID\PYRAZINAMIDE\RIFAMPIN
     Indication: DISSEMINATED TUBERCULOSIS
     Dosage: 1 DF, UNK (120 MG/ 80MG)
     Route: 048
     Dates: start: 20130717
  2. SILODOSINE [Concomitant]
     Active Substance: SILODOSIN
     Indication: PRODUCT USED FOR UNKNOWN INDICATION
     Dosage: 4 MG, UNK
     Route: 048
     Dates: start: 20131104, end: 20131202
  3. FINASTERIDE. [Concomitant]
     Active Substance: FINASTERIDE
     Indication: PRODUCT USED FOR UNKNOWN INDICATION
     Dosage: UNK
     Route: 048
     Dates: start: 20140124
  4. COLCHICINE. [Concomitant]
     Active Substance: COLCHICINE
     Indication: ARTHRITIS
     Dosage: 0.5 MG, UNK
     Route: 048
     Dates: start: 20130717
  5. EPBUTOL [Concomitant]
     Indication: DISSEMINATED TUBERCULOSIS
     Dosage: 400 MG, UNK
     Route: 048
     Dates: start: 20130717
  6. BENZBROMARONE [Concomitant]
     Active Substance: BENZBROMARONE
     Indication: ARTHRITIS
     Dosage: 100 MG, UNK
     Route: 048
     Dates: start: 20130717
  7. BEESIX [Concomitant]
     Indication: DISSEMINATED TUBERCULOSIS
     Dosage: 50 MG, UNK
     Route: 048
     Dates: start: 20130717
  8. PREDNISOLONE. [Concomitant]
     Active Substance: PREDNISOLONE
     Indication: PLEURAL EFFUSION
     Dosage: 5 MG, UNK
     Route: 048
     Dates: start: 20130717
  9. ACTEIN [Concomitant]
     Indication: COUGH
     Dosage: 600 MG, UNK
     Route: 048
     Dates: start: 20130717
  10. GASTER [Concomitant]
     Active Substance: FAMOTIDINE
     Indication: GASTROOESOPHAGEAL REFLUX DISEASE
     Dosage: 20 MG, UNK
     Route: 048
     Dates: start: 20130708
  11. TASIGNA [Suspect]
     Active Substance: NILOTINIB
     Dosage: 300 UNK, UNK
     Route: 048
     Dates: start: 20130924, end: 20131001
  12. ISONIAZIDE [Concomitant]
     Active Substance: ISONIAZID
     Indication: DISSEMINATED TUBERCULOSIS
     Dosage: 1 DF, UNK (100 MG/ TAB)
     Route: 048
     Dates: start: 20130924
  13. TASIGNA [Suspect]
     Active Substance: NILOTINIB
     Indication: CHRONIC MYELOID LEUKAEMIA
     Dosage: 600 MG, UNK
     Route: 048
     Dates: start: 20130704, end: 20130807
  14. TAMSULOISIN [Concomitant]
     Indication: PRODUCT USED FOR UNKNOWN INDICATION
     Dosage: 0.4 MG, UNK
     Route: 048
     Dates: start: 20140102

REACTIONS (1)
  - Platelet count decreased [Recovering/Resolving]

NARRATIVE: CASE EVENT DATE: 20130731
